FAERS Safety Report 4302443-3 (Version None)
Quarter: 2004Q1

REPORT INFORMATION
  Report Type: 
  Country: None (occurrence: None)
  Receive Date: 20040220
  Receipt Date: 20040213
  Transmission Date: 20041129
  Serious: Yes (Hospitalization, Disabling)
  Sender: FDA-Public Use
  Company Number: BE-JNJFOC-20040203155

PATIENT
  Age: 64 Year
  Sex: Male
  Weight: 58 kg

DRUGS (1)
  1. REMICADE [Suspect]
     Indication: RHEUMATOID ARTHRITIS
     Dosage: INTRAVENOUS
     Route: 042

REACTIONS (6)
  - BLOOD CULTURE POSITIVE [None]
  - EMPHYSEMA [None]
  - LARYNGEAL OEDEMA [None]
  - LUNG DISORDER [None]
  - NOCARDIOSIS [None]
  - PLEURAL EFFUSION [None]
